FAERS Safety Report 5357850-7 (Version None)
Quarter: 2007Q2

REPORT INFORMATION
  Report Type: 
  Country: None (occurrence: None)
  Receive Date: 20070530
  Receipt Date: 20070312
  Transmission Date: 20071010
  Serious: Yes (Hospitalization)
  Sender: FDA-Public Use
  Company Number: US200701003333

PATIENT
  Age: 17 Year
  Sex: Female

DRUGS (3)
  1. ZYPREXA [Suspect]
     Indication: AGGRESSION
     Dosage: SEE IMAGE
     Route: 048
     Dates: start: 20070117, end: 20070117
  2. ZYPREXA [Suspect]
     Indication: AGGRESSION
     Dosage: SEE IMAGE
     Route: 048
     Dates: end: 20070117
  3. AMANTADINE HCL [Concomitant]

REACTIONS (1)
  - ABNORMAL BEHAVIOUR [None]
